FAERS Safety Report 10169734 (Version 3)
Quarter: 2014Q2

REPORT INFORMATION
  Report Type: Spontaneous
  Country: US (occurrence: US)
  Receive Date: 20140513
  Receipt Date: 20140612
  Transmission Date: 20141212
  Serious: Yes (Other)
  Sender: FDA-Public Use
  Company Number: US-BAYER-2014-070802

PATIENT
  Age: 33 Year
  Sex: Male

DRUGS (1)
  1. HELIXATE FS [Suspect]
     Indication: HAEMATOMA
     Dosage: 25 IU/KG, QD
     Dates: start: 200307

REACTIONS (1)
  - Anti factor VIII antibody positive [Recovered/Resolved]
